FAERS Safety Report 10515611 (Version 1)
Quarter: 2014Q4

REPORT INFORMATION
  Report Type: Spontaneous
  Country: FI (occurrence: FI)
  Receive Date: 20141014
  Receipt Date: 20141014
  Transmission Date: 20150528
  Serious: Yes (Disabling)
  Sender: FDA-Public Use
  Company Number: FI-JNJFOC-20141002392

PATIENT
  Sex: Female

DRUGS (1)
  1. XEPLION [Suspect]
     Active Substance: PALIPERIDONE PALMITATE
     Indication: PRODUCT USED FOR UNKNOWN INDICATION
     Route: 030

REACTIONS (10)
  - Spinal pain [Unknown]
  - Fatigue [Unknown]
  - Weight increased [Unknown]
  - Oedema peripheral [Unknown]
  - Abnormal behaviour [Unknown]
  - Swelling [Unknown]
  - Cardiac discomfort [Unknown]
  - Diarrhoea [Unknown]
  - Hallucination [Unknown]
  - Pain in extremity [Unknown]
